FAERS Safety Report 23153362 (Version 2)
Quarter: 2023Q4

REPORT INFORMATION
  Report Type: Spontaneous
  Country: FR (occurrence: FR)
  Receive Date: 20231107
  Receipt Date: 20231130
  Transmission Date: 20240109
  Serious: Yes (Other)
  Sender: FDA-Public Use
  Company Number: FR-BAYER-2023A154424

PATIENT
  Age: 28 Year
  Sex: Female
  Weight: 55 kg

DRUGS (1)
  1. GADOBUTROL [Suspect]
     Active Substance: GADOBUTROL
     Indication: Magnetic resonance imaging head
     Dosage: UNK, ONCE
     Route: 042
     Dates: start: 20231025, end: 20231025

REACTIONS (6)
  - Blood pressure decreased [None]
  - Pruritus [Recovered/Resolved]
  - Contrast media allergy [Recovered/Resolved]
  - Acne [None]
  - Malaise [Recovered/Resolved]
  - Chloasma [Recovered/Resolved]
